FAERS Safety Report 7885141-9 (Version None)
Quarter: 2011Q4

REPORT INFORMATION
  Report Type: 
  Country: None (occurrence: None)
  Receive Date: 20111102
  Receipt Date: 20111024
  Transmission Date: 20120403
  Serious: Yes (Hospitalization)
  Sender: FDA-Public Use
  Company Number: US-ELI_LILLY_AND_COMPANY-US201110006225

PATIENT
  Sex: Male
  Weight: 88.889 kg

DRUGS (7)
  1. BYETTA [Suspect]
     Dosage: 5 UG, BID
     Route: 058
  2. BYETTA [Suspect]
     Dosage: 5 UG, BID
     Route: 058
     Dates: start: 20080101
  3. BYETTA [Suspect]
     Dosage: 5 UG, BID
  4. METFORMIN HCL [Concomitant]
     Indication: TYPE 2 DIABETES MELLITUS
     Dosage: UNK
     Route: 048
  5. BYETTA [Suspect]
     Dosage: 5 UG, BID
  6. INSULIN [Concomitant]
     Indication: TYPE 2 DIABETES MELLITUS
     Dosage: UNK
     Route: 058
  7. BYETTA [Suspect]
     Dosage: 10 UG, BID
     Route: 058

REACTIONS (10)
  - DECREASED APPETITE [None]
  - BACK PAIN [None]
  - SPINAL DISORDER [None]
  - NECK PAIN [None]
  - DYSPEPSIA [None]
  - FATIGUE [None]
  - OFF LABEL USE [None]
  - BLOOD GLUCOSE DECREASED [None]
  - BLOOD GLUCOSE INCREASED [None]
  - WEIGHT DECREASED [None]
